FAERS Safety Report 16963577 (Version 5)
Quarter: 2021Q1

REPORT INFORMATION
  Report Type: Report from Study
  Country: US (occurrence: US)
  Receive Date: 20191025
  Receipt Date: 20210304
  Transmission Date: 20210419
  Serious: Yes (Hospitalization)
  Sender: FDA-Public Use
  Company Number: US-GILEAD-2019-0417564

PATIENT
  Age: 65 Year
  Sex: Male
  Weight: 141 kg

DRUGS (98)
  1. DEXAMETHASONE. [Suspect]
     Active Substance: DEXAMETHASONE
     Dosage: 4 MG, QD
     Route: 042
     Dates: start: 20190714, end: 20190715
  2. FENTANYL. [Concomitant]
     Active Substance: FENTANYL
     Dosage: 50,UG,ONCE
     Route: 042
     Dates: start: 20190619, end: 20190619
  3. NORMAL SALINE [Concomitant]
     Active Substance: SODIUM CHLORIDE
     Dosage: 500,ML,CONTINUOUS
     Route: 042
     Dates: start: 20190619, end: 20190619
  4. ENTECAVIR. [Concomitant]
     Active Substance: ENTECAVIR
     Dosage: 0.5 MG, QOD
     Route: 048
     Dates: start: 20190710, end: 20190712
  5. PIPERACILLIN AND TAZOBACTAM [Concomitant]
     Active Substance: PIPERACILLIN SODIUM\TAZOBACTAM SODIUM
     Dosage: 4.5,G,OTHER
     Route: 042
     Dates: start: 20190708, end: 20190709
  6. INSULIN ASPART PROTAMINE [Concomitant]
     Dosage: 8,OTHER,AS NECESSARY
     Route: 058
     Dates: start: 20190701, end: 20190701
  7. INSULIN ASPART PROTAMINE [Concomitant]
     Dosage: 19,OTHER,AS NECESSARY
     Route: 058
     Dates: start: 20190702, end: 20190702
  8. ATENOLOL. [Concomitant]
     Active Substance: ATENOLOL
     Dosage: 50,MG,TWICE DAILY
     Route: 048
     Dates: start: 20190624, end: 20190702
  9. DILTIAZEM [DILTIAZEM HYDROCHLORIDE] [Concomitant]
     Active Substance: DILTIAZEM HYDROCHLORIDE
     Dosage: 75 MG, QID
     Dates: start: 20190713, end: 20190722
  10. FLUDARABINE [Suspect]
     Active Substance: FLUDARABINE PHOSPHATE
     Indication: BONE MARROW CONDITIONING REGIMEN
     Dosage: 30 MG/M2
     Route: 042
     Dates: start: 20190620, end: 20190622
  11. DEXAMETHASONE. [Suspect]
     Active Substance: DEXAMETHASONE
     Dosage: 2 MG, ONCE
     Route: 042
     Dates: start: 20190716, end: 20190716
  12. LEVAQUIN [Concomitant]
     Active Substance: LEVOFLOXACIN
  13. FENTANYL. [Concomitant]
     Active Substance: FENTANYL
     Dosage: 25,UG,FOUR TIMES DAILY
     Route: 042
     Dates: start: 20190619, end: 20190619
  14. PENTAMIDINE [Concomitant]
     Active Substance: PENTAMIDINE
     Dosage: 300,MG,ONCE
     Route: 055
     Dates: start: 20190620, end: 20190620
  15. PIPERACILLIN AND TAZOBACTAM [Concomitant]
     Active Substance: PIPERACILLIN SODIUM\TAZOBACTAM SODIUM
     Dosage: 4.5,G,FOUR TIMES DAILY
     Route: 042
     Dates: start: 20190630, end: 20190704
  16. INSULIN ASPART PROTAMINE [Concomitant]
     Dosage: 40,OTHER,AS NECESSARY
     Route: 058
     Dates: start: 20190704, end: 20190704
  17. BRINZOLAMIDE [Concomitant]
     Active Substance: BRINZOLAMIDE
     Dosage: 1,OTHER,TWICE DAILY
     Route: 031
     Dates: start: 20190625, end: 20190722
  18. ACETAMINOPHEN. [Concomitant]
     Active Substance: ACETAMINOPHEN
     Dosage: 650,MG,ONCE
     Route: 048
     Dates: start: 20190701, end: 20190701
  19. TRAVOPROST. [Concomitant]
     Active Substance: TRAVOPROST
     Dosage: 1,OTHER,TWICE DAILY
     Route: 031
     Dates: start: 20190624, end: 20190712
  20. ENALAPRIL [Concomitant]
     Active Substance: ENALAPRIL
     Dosage: 10,MG,DAILY
     Route: 048
     Dates: start: 20190714, end: 20190721
  21. DILTIAZEM [DILTIAZEM HYDROCHLORIDE] [Concomitant]
     Active Substance: DILTIAZEM HYDROCHLORIDE
     Dosage: 75,MG,FOUR TIMES DAILY
     Route: 048
     Dates: start: 20190704, end: 20190706
  22. DOCUSATE SODIUM. [Concomitant]
     Active Substance: DOCUSATE SODIUM
     Dosage: 100,MG,AS NECESSARY
     Route: 048
     Dates: start: 20190624, end: 20190708
  23. ACYCLOVIR [ACICLOVIR] [Concomitant]
     Active Substance: ACYCLOVIR
     Dosage: 400 MG, BID
     Route: 042
     Dates: start: 20190707, end: 20190709
  24. CLONIDINE. [Concomitant]
     Active Substance: CLONIDINE
     Dosage: 0.1 MG, BID
     Route: 048
     Dates: start: 20190719, end: 20190722
  25. DEXAMETHASONE. [Suspect]
     Active Substance: DEXAMETHASONE
     Indication: NEUROTOXICITY
     Dosage: 10 MG, BID
     Route: 042
     Dates: start: 20190701, end: 20190707
  26. DEXAMETHASONE. [Suspect]
     Active Substance: DEXAMETHASONE
     Dosage: 8 MG, BID
     Route: 042
     Dates: start: 20190707, end: 20190708
  27. DEXAMETHASONE. [Suspect]
     Active Substance: DEXAMETHASONE
     Dosage: 2 MG, TID
     Route: 042
     Dates: start: 20190716, end: 20190716
  28. DEXAMETHASONE. [Suspect]
     Active Substance: DEXAMETHASONE
     Dosage: 2 MG
     Route: 042
     Dates: start: 20190721, end: 20190722
  29. DEXAMETHASONE. [Suspect]
     Active Substance: DEXAMETHASONE
     Dosage: 2 MG, ONCE
     Route: 042
     Dates: start: 20190716, end: 20190716
  30. KEPPRA [Concomitant]
     Active Substance: LEVETIRACETAM
     Dosage: 500,MG,TWICE DAILY
     Route: 048
     Dates: start: 20190713, end: 20190722
  31. PALONOSETRON. [Concomitant]
     Active Substance: PALONOSETRON HYDROCHLORIDE
     Dosage: 250,UG,ONCE
     Route: 042
     Dates: start: 20190620, end: 20190620
  32. INSULIN ASPART PROTAMINE [Concomitant]
     Dosage: 2,OTHER,AS NECESSARY
     Route: 058
     Dates: start: 20190626, end: 20190626
  33. INSULIN ASPART PROTAMINE [Concomitant]
     Dosage: 8,OTHER,AS NECESSARY
     Route: 058
     Dates: start: 20190630, end: 20190630
  34. INSULIN ASPART PROTAMINE [Concomitant]
     Dosage: 24,OTHER,AS NECESSARY
     Route: 058
     Dates: start: 20190703, end: 20190703
  35. ASPIRIN (E.C.) [Concomitant]
     Active Substance: ASPIRIN
     Dosage: 81,MG,DAILY
     Route: 048
     Dates: start: 20190625, end: 20190722
  36. ENALAPRIL [Concomitant]
     Active Substance: ENALAPRIL
     Dosage: 20,MG,DAILY
     Route: 048
     Dates: start: 20190625, end: 20190701
  37. ENALAPRIL [Concomitant]
     Active Substance: ENALAPRIL
     Dosage: 20,MG,DAILY
     Route: 048
     Dates: start: 20190714, end: 20190715
  38. LORAZEPAM. [Concomitant]
     Active Substance: LORAZEPAM
     Dosage: 1,MG,TWICE DAILY
     Route: 042
     Dates: start: 20190706, end: 20190707
  39. LEVETIRACETAM. [Concomitant]
     Active Substance: LEVETIRACETAM
     Dosage: 500,MG,TWICE DAILY
     Route: 048
     Dates: start: 20190624, end: 20190706
  40. ACYCLOVIR [ACICLOVIR] [Concomitant]
     Active Substance: ACYCLOVIR
     Dosage: 400 MG, BID
     Route: 042
     Dates: start: 20190710, end: 20190711
  41. DEXAMETHASONE. [Suspect]
     Active Substance: DEXAMETHASONE
     Dosage: 4 MG, QD
     Route: 042
     Dates: start: 20190718, end: 20190720
  42. NORMAL SALINE [Concomitant]
     Active Substance: SODIUM CHLORIDE
     Dosage: 1000,ML,CONTINUOUS
     Route: 042
     Dates: start: 20190620, end: 20190620
  43. PIPERACILLIN AND TAZOBACTAM [Concomitant]
     Active Substance: PIPERACILLIN SODIUM\TAZOBACTAM SODIUM
     Dosage: 4.5,G,OTHER
     Route: 042
     Dates: start: 20190716, end: 20190717
  44. ACETAMINOPHEN. [Concomitant]
     Active Substance: ACETAMINOPHEN
     Dosage: 650,MG,ONCE
     Route: 048
     Dates: start: 20190625, end: 20190625
  45. ATENOLOL. [Concomitant]
     Active Substance: ATENOLOL
     Dosage: 50,MG,TWICE DAILY
     Route: 048
     Dates: start: 20190704, end: 20190706
  46. TRAVOPROST. [Concomitant]
     Active Substance: TRAVOPROST
     Dosage: 1,OTHER,DAILY
     Dates: start: 20190624, end: 20190721
  47. LORAZEPAM. [Concomitant]
     Active Substance: LORAZEPAM
     Dosage: 1,MG,ONCE
     Route: 042
     Dates: start: 20190703, end: 20190703
  48. SENNATAB [Concomitant]
     Dosage: 17.2,MG,DAILY
     Route: 048
     Dates: start: 20190624, end: 20190701
  49. DEXAMETHASONE. [Suspect]
     Active Substance: DEXAMETHASONE
     Dosage: 10 MG, BID
     Route: 042
     Dates: start: 20190710, end: 20190711
  50. DEXAMETHASONE. [Suspect]
     Active Substance: DEXAMETHASONE
     Dosage: 2 MG, ONCE
     Route: 042
     Dates: start: 20190717, end: 20190717
  51. AZOPT [Concomitant]
     Active Substance: BRINZOLAMIDE
     Dosage: 1,OTHER,TWICE DAILY; 1% OPHALMIC SUSPENSION
     Route: 031
     Dates: start: 20190614
  52. NORMAL SALINE [Concomitant]
     Active Substance: SODIUM CHLORIDE
     Dosage: 1000,ML,CONTINUOUS
     Route: 042
     Dates: start: 20190620, end: 20190621
  53. ENTECAVIR. [Concomitant]
     Active Substance: ENTECAVIR
     Dosage: 0.5,MG,DAILY; 5 MG ORAL TABLET
     Route: 048
     Dates: start: 20190713, end: 20190721
  54. AQUAPHOR [WHITE SOFT PARAFFIN] [Concomitant]
     Dosage: 1,OTHER,AS NECESSARY
     Route: 061
     Dates: start: 20190624, end: 20190704
  55. INSULIN ASPART PROTAMINE [Concomitant]
     Dosage: 1,OTHER,ONCE
     Route: 058
     Dates: start: 20190627, end: 20190627
  56. VITAMIN D3 [Concomitant]
     Active Substance: CHOLECALCIFEROL
     Dosage: 2000,OTHER,DAILY
     Route: 048
     Dates: start: 20190625, end: 20190722
  57. ENALAPRIL [Concomitant]
     Active Substance: ENALAPRIL
     Dosage: 0.625,MG, QID
     Route: 042
     Dates: start: 20190707, end: 20190707
  58. LEVETIRACETAM. [Concomitant]
     Active Substance: LEVETIRACETAM
     Dosage: 500,MG,TWICE DAILY
     Route: 042
     Dates: start: 20190707, end: 20190712
  59. CYCLOPHOSPHAMIDE. [Suspect]
     Active Substance: CYCLOPHOSPHAMIDE
     Indication: BONE MARROW CONDITIONING REGIMEN
     Dosage: 500 MG/M2
     Route: 042
     Dates: start: 20190620, end: 20190622
  60. DEXAMETHASONE. [Suspect]
     Active Substance: DEXAMETHASONE
     Dosage: 8 MG, BID
     Route: 042
     Dates: start: 20190711, end: 20190712
  61. DEXAMETHASONE. [Suspect]
     Active Substance: DEXAMETHASONE
     Dosage: 2 MG, ONCE
     Route: 042
     Dates: start: 20190715, end: 20190715
  62. DEXAMETHASONE. [Suspect]
     Active Substance: DEXAMETHASONE
     Dosage: 4 MG, QD
     Route: 048
     Dates: start: 20190721, end: 20190722
  63. NORMAL SALINE [Concomitant]
     Active Substance: SODIUM CHLORIDE
     Dosage: 500 ML
     Route: 042
     Dates: start: 20190625, end: 20190625
  64. NORMAL SALINE [Concomitant]
     Active Substance: SODIUM CHLORIDE
     Dosage: 500 ML
     Route: 042
     Dates: start: 20190625, end: 20190625
  65. ENTECAVIR. [Concomitant]
     Active Substance: ENTECAVIR
     Dosage: 0.5,MG,DAILY; 5 MG ORAL TABLET
     Dates: start: 20190625, end: 20190706
  66. ENALAPRIL [Concomitant]
     Active Substance: ENALAPRIL
     Dosage: 0.625,MG, ONCE
     Route: 042
     Dates: start: 20190708, end: 20190708
  67. DEXAMETHASONE. [Suspect]
     Active Substance: DEXAMETHASONE
     Dosage: 4 MG, ONCE
     Route: 042
     Dates: start: 20190717, end: 20190717
  68. DEXAMETHASONE. [Suspect]
     Active Substance: DEXAMETHASONE
     Dosage: 2 MG, QD
     Route: 042
     Dates: start: 20190718, end: 20190720
  69. DEXAMETHASONE. [Suspect]
     Active Substance: DEXAMETHASONE
     Dosage: 4 MG, ONCE
     Route: 042
     Dates: start: 20190717, end: 20190717
  70. INSULIN [Concomitant]
     Active Substance: INSULIN NOS
     Dosage: 1,OTHER,ONCE
     Route: 058
     Dates: start: 20190627, end: 20190627
  71. METFORMIN [Concomitant]
     Active Substance: METFORMIN HYDROCHLORIDE
     Dosage: 1000,MG,TWICE DAILY
     Route: 048
     Dates: start: 20190614
  72. KEPPRA [Concomitant]
     Active Substance: LEVETIRACETAM
     Dosage: 500,MG,TWICE DAILY
     Route: 048
     Dates: start: 20190615, end: 20190706
  73. MIDAZOLAM. [Concomitant]
     Active Substance: MIDAZOLAM
     Dosage: 0.5,MG,FOUR TIMES DAILY
     Route: 042
     Dates: start: 20190619, end: 20190619
  74. NORMAL SALINE [Concomitant]
     Active Substance: SODIUM CHLORIDE
     Dosage: 1000,ML,CONTINUOUS
     Route: 042
     Dates: start: 20190703, end: 20190703
  75. ALBUTEROL [SALBUTAMOL] [Concomitant]
     Active Substance: ALBUTEROL
     Dosage: 3,ML,ONCE
     Route: 055
     Dates: start: 20190620, end: 20190620
  76. ALBUTEROL [SALBUTAMOL] [Concomitant]
     Active Substance: ALBUTEROL
     Dosage: 3,ML,ONCE
     Route: 055
     Dates: start: 20190702, end: 20190702
  77. INSULIN ASPART PROTAMINE [Concomitant]
     Dosage: 1,OTHER,ONCE
     Route: 058
     Dates: start: 20190629, end: 20190629
  78. DIPHENHYDRAMINE. [Concomitant]
     Active Substance: DIPHENHYDRAMINE
     Dosage: 25,MG,ONCE
     Route: 048
     Dates: start: 20190625, end: 20190625
  79. ACETAMINOPHEN. [Concomitant]
     Active Substance: ACETAMINOPHEN
     Dosage: 650,MG,ONCE
     Route: 048
     Dates: start: 20190724, end: 20190724
  80. ENALAPRIL [Concomitant]
     Active Substance: ENALAPRIL
     Dosage: 1.25,MG, ONCE
     Route: 042
     Dates: start: 20190708, end: 20190708
  81. SENNATAB [Concomitant]
     Dosage: 17.2,MG,AS NECESSARY
     Route: 048
     Dates: start: 20190626, end: 20190721
  82. ACYCLOVIR [ACICLOVIR] [Concomitant]
     Active Substance: ACYCLOVIR
     Dosage: 400,MG,TWICE DAILY
     Route: 048
     Dates: start: 20190624, end: 20190706
  83. ACYCLOVIR [ACICLOVIR] [Concomitant]
     Active Substance: ACYCLOVIR
     Dosage: 400 MG, QD
     Route: 048
     Dates: start: 20190712, end: 20190722
  84. CLONIDINE. [Concomitant]
     Active Substance: CLONIDINE
     Dosage: 0.1 MG, ONCE
     Dates: start: 20190624, end: 20190706
  85. AXICABTAGENE CILOLEUCEL [Suspect]
     Active Substance: AXICABTAGENE CILOLEUCEL
     Indication: DIFFUSE LARGE B-CELL LYMPHOMA REFRACTORY
     Dosage: 68 ML, ONCE
     Route: 042
     Dates: start: 20190625, end: 20190625
  86. DEXAMETHASONE. [Suspect]
     Active Substance: DEXAMETHASONE
     Dosage: 6 MG, BID
     Route: 042
     Dates: start: 20190713, end: 20190714
  87. DEXAMETHASONE. [Suspect]
     Active Substance: DEXAMETHASONE
     Dosage: 2 MG, QD
     Route: 048
     Dates: start: 20190721, end: 20190721
  88. MIDAZOLAM. [Concomitant]
     Active Substance: MIDAZOLAM
     Dosage: 1,MG,ONCE
     Route: 042
     Dates: start: 20190619, end: 20190619
  89. NORMAL SALINE [Concomitant]
     Active Substance: SODIUM CHLORIDE
     Dosage: 1000,ML,DAILY
     Route: 042
     Dates: start: 20190621, end: 20190625
  90. ENTECAVIR. [Concomitant]
     Active Substance: ENTECAVIR
     Dosage: 0.5,MG,CONTINUOUS
     Route: 048
     Dates: start: 20190708, end: 20190708
  91. PIPERACILLIN AND TAZOBACTAM [Concomitant]
     Active Substance: PIPERACILLIN SODIUM\TAZOBACTAM SODIUM
     Dosage: 4.5,G,ONCE
     Route: 042
     Dates: start: 20190716, end: 20190716
  92. INSULIN ASPART PROTAMINE [Concomitant]
     Dosage: 46,OTHER,AS NECESSARY
     Route: 058
     Dates: start: 20190705, end: 20190705
  93. LORAZEPAM. [Concomitant]
     Active Substance: LORAZEPAM
     Dosage: 0.5,MG,ONCE
     Route: 048
     Dates: start: 20190624, end: 20190624
  94. DILTIAZEM [DILTIAZEM HYDROCHLORIDE] [Concomitant]
     Active Substance: DILTIAZEM HYDROCHLORIDE
     Dosage: 75,MG,FOUR TIMES DAILY
     Route: 048
     Dates: start: 20190624, end: 20190702
  95. BACITRACIN. [Concomitant]
     Active Substance: BACITRACIN
     Dosage: 1,OTHER,DAILY
     Route: 061
     Dates: start: 20190624, end: 20190712
  96. DOCUSATE SODIUM. [Concomitant]
     Active Substance: DOCUSATE SODIUM
     Dosage: 100,MG,AS NECESSARY
     Route: 048
     Dates: start: 20190628, end: 20190708
  97. FLUCONAZOLE. [Concomitant]
     Active Substance: FLUCONAZOLE
     Dosage: 200,MG,DAILY
     Route: 048
     Dates: start: 20190624, end: 20190707
  98. CLONIDINE. [Concomitant]
     Active Substance: CLONIDINE
     Dosage: 0.1 MG/24 HR PATCH
     Route: 062
     Dates: start: 20190707, end: 20190717

REACTIONS (5)
  - Confusional state [Recovered/Resolved]
  - Cognitive disorder [Recovered/Resolved]
  - Agitation [Recovered/Resolved]
  - Aphasia [Recovered/Resolved]
  - Tremor [Recovered/Resolved]

NARRATIVE: CASE EVENT DATE: 20190701
